FAERS Safety Report 6644538-5 (Version None)
Quarter: 2010Q1

REPORT INFORMATION
  Report Type: 
  Country: None (occurrence: None)
  Receive Date: 20100319
  Receipt Date: 20100319
  Transmission Date: 20100710
  Serious: Yes (Other)
  Sender: FDA-Public Use
  Company Number: None

PATIENT
  Sex: Male
  Weight: 65 kg

DRUGS (2)
  1. HYDROCORTISONE [Suspect]
     Dosage: PO - TID, VARIOUS DOSES
     Route: 048
     Dates: start: 20070101, end: 20080101
  2. FLORINEF [Concomitant]

REACTIONS (2)
  - ABNORMAL BEHAVIOUR [None]
  - LABORATORY TEST ABNORMAL [None]
